FAERS Safety Report 25250289 (Version 1)
Quarter: 2025Q2

REPORT INFORMATION
  Report Type: Spontaneous
  Country: US (occurrence: US)
  Receive Date: 20250429
  Receipt Date: 20250429
  Transmission Date: 20250716
  Serious: Yes (Other)
  Sender: AUROBINDO
  Company Number: US-AUROBINDO-AUR-APL-2025-021901

PATIENT
  Age: 16 Year
  Sex: Male

DRUGS (7)
  1. DANTROLENE SODIUM [Suspect]
     Active Substance: DANTROLENE SODIUM
     Indication: Hyperthermia malignant
     Route: 065
  2. HYDROCORTISONE [Suspect]
     Active Substance: HYDROCORTISONE
     Indication: Hypotension
     Route: 065
  3. INSULIN ASPART [Suspect]
     Active Substance: INSULIN ASPART
     Indication: Diabetic ketoacidosis
     Route: 041
  4. INSULIN ASPART [Suspect]
     Active Substance: INSULIN ASPART
     Indication: Hyperglycaemic hyperosmolar nonketotic syndrome
  5. SODIUM CHLORIDE [Suspect]
     Active Substance: SODIUM CHLORIDE
     Indication: Depressed level of consciousness
     Dosage: UNK UNK, TWO TIMES A DAY
     Route: 065
  6. MANNITOL [Suspect]
     Active Substance: MANNITOL
     Indication: Hypotension
     Route: 065
  7. ACETAMINOPHEN [Suspect]
     Active Substance: ACETAMINOPHEN
     Indication: Hyperthermia malignant
     Route: 065

REACTIONS (2)
  - Bradycardia [Recovered/Resolved]
  - Drug ineffective [Unknown]
